FAERS Safety Report 18198498 (Version 1)
Quarter: 2020Q3

REPORT INFORMATION
  Report Type: Spontaneous
  Country: US (occurrence: US)
  Receive Date: 20200826
  Receipt Date: 20200826
  Transmission Date: 20201103
  Serious: Yes (Disabling, Other)
  Sender: FDA-Public Use
  Company Number: None

PATIENT
  Age: 54 Year
  Sex: Female
  Weight: 57.61 kg

DRUGS (1)
  1. LEVOFLOXACIN 750MG TABLETS [Suspect]
     Active Substance: LEVOFLOXACIN
     Indication: ABDOMINAL INFECTION
     Dosage: ?          QUANTITY:10 TABLETS;?
     Route: 048
     Dates: start: 20191210, end: 20191219

REACTIONS (6)
  - Hypoaesthesia [None]
  - Blood pressure increased [None]
  - Angina pectoris [None]
  - Foot fracture [None]
  - Ankle fracture [None]
  - Pain [None]

NARRATIVE: CASE EVENT DATE: 20191210
